FAERS Safety Report 6455460-1 (Version None)
Quarter: 2009Q4

REPORT INFORMATION
  Report Type: 
  Country: None (occurrence: None)
  Receive Date: 20091125
  Receipt Date: 20090825
  Transmission Date: 20100525
  Serious: No
  Sender: FDA-Public Use
  Company Number: US-ABBOTT-09P-163-0589461-00

PATIENT
  Sex: Male
  Weight: 108.96 kg

DRUGS (5)
  1. SIMCOR [Suspect]
     Indication: HIGH DENSITY LIPOPROTEIN DECREASED
     Dosage: 500/20
     Route: 048
     Dates: start: 20090609, end: 20090630
  2. METOPROLOL/HCT [Concomitant]
     Indication: HYPERTENSION
     Dosage: 100/25
     Route: 048
  3. AMLODIPINE BESYLATE AND BENAZEPRIL HCL [Concomitant]
     Indication: HYPERTENSION
     Dosage: 5/20
  4. POTASSIUM CHLORIDE [Concomitant]
     Indication: MINERAL SUPPLEMENTATION
     Route: 048
  5. PIROXICAM [Concomitant]
     Indication: ARTHRITIS
     Route: 048

REACTIONS (2)
  - ABDOMINAL DISCOMFORT [None]
  - BLOOD URINE PRESENT [None]
